FAERS Safety Report 4597649-2 (Version None)
Quarter: 2005Q1

REPORT INFORMATION
  Report Type: 
  Country: None (occurrence: None)
  Receive Date: 20050303
  Receipt Date: 20050117
  Transmission Date: 20050727
  Serious: Yes (Congenital Anomaly)
  Sender: FDA-Public Use
  Company Number: GB-GLAXOSMITHKLINE-B0365978A

PATIENT
  Age: 38 Week
  Sex: Female

DRUGS (4)
  1. COMBIVIR [Suspect]
     Dates: start: 20010801
  2. VIRAMUNE [Suspect]
     Dosage: 400MG PER DAY
     Dates: start: 20010801
  3. FOLATE [Concomitant]
  4. METHYLDOPA [Concomitant]

REACTIONS (3)
  - CARDIAC MURMUR [None]
  - DRUG EXPOSURE DURING PREGNANCY [None]
  - VENTRICULAR SEPTAL DEFECT [None]
